FAERS Safety Report 7268742-0 (Version None)
Quarter: 2011Q1

REPORT INFORMATION
  Report Type: 
  Country: None (occurrence: None)
  Receive Date: 20110201
  Receipt Date: 20110130
  Transmission Date: 20110831
  Serious: Yes (Other)
  Sender: FDA-Public Use
  Company Number: US-PFIZER INC-2011021376

PATIENT
  Sex: Female
  Weight: 89.342 kg

DRUGS (11)
  1. ADVAIR [Concomitant]
     Dosage: UNK, AS NEEDED
  2. ZANTAC [Concomitant]
     Indication: DYSPEPSIA
     Dosage: UNK
  3. CHANTIX [Suspect]
     Dosage: 2 MG, 1X/DAY
     Dates: start: 20110127
  4. VICODIN [Concomitant]
     Dosage: UNK, AS NEEDED
  5. SOMA [Concomitant]
     Dosage: UNK
  6. LIPITOR [Concomitant]
     Dosage: UNK
  7. PROMETHAZINE [Concomitant]
     Indication: NAUSEA
     Dosage: UNK, AS NEEDED
  8. CHANTIX [Suspect]
     Indication: SMOKING CESSATION THERAPY
     Dosage: 0.5 MG, DAILY
     Route: 048
     Dates: start: 20101001
  9. PAXIL [Concomitant]
     Dosage: UNK
  10. FISH OIL [Concomitant]
     Dosage: UNK
  11. LASIX [Concomitant]
     Indication: FLUID RETENTION
     Dosage: UNK

REACTIONS (3)
  - ANXIETY [None]
  - ORAL MUCOSAL EXFOLIATION [None]
  - OEDEMA MOUTH [None]
